FAERS Safety Report 15991060 (Version 2)
Quarter: 2019Q2

REPORT INFORMATION
  Report Type: Report from Study
  Country: None (occurrence: BR)
  Receive Date: 20190221
  Receipt Date: 20190519
  Transmission Date: 20190711
  Serious: Yes (Other)
  Sender: FDA-Public Use
  Company Number: BR-ABBVIE-19K-020-2668830-00

PATIENT
  Age: 37 Year
  Sex: Male

DRUGS (2)
  1. HUMIRA [Suspect]
     Active Substance: ADALIMUMAB
     Indication: COLITIS ULCERATIVE
     Route: 058
  2. HUMIRA [Suspect]
     Active Substance: ADALIMUMAB
     Route: 058
     Dates: start: 201901

REACTIONS (12)
  - Oropharyngeal pain [Recovering/Resolving]
  - Hypoaesthesia teeth [Recovered/Resolved]
  - Ear infection [Recovering/Resolving]
  - Rhinitis [Recovering/Resolving]
  - Bone pain [Unknown]
  - Migraine [Recovering/Resolving]
  - Pharyngeal inflammation [Recovering/Resolving]
  - Eye infection [Recovering/Resolving]
  - Facial paralysis [Recovered/Resolved]
  - Trigeminal nerve disorder [Recovering/Resolving]
  - Headache [Recovering/Resolving]
  - Pharyngitis [Recovering/Resolving]

NARRATIVE: CASE EVENT DATE: 201812
